FAERS Safety Report 22976735 (Version 3)
Quarter: 2023Q4

REPORT INFORMATION
  Report Type: Spontaneous
  Country: US (occurrence: US)
  Receive Date: 20230925
  Receipt Date: 20231012
  Transmission Date: 20240109
  Serious: No
  Sender: FDA-Public Use
  Company Number: US-LUPIN PHARMACEUTICALS INC.-2023-08031

PATIENT

DRUGS (2)
  1. ALBUTEROL SULFATE [Suspect]
     Active Substance: ALBUTEROL SULFATE
     Indication: Chronic obstructive pulmonary disease
     Dosage: UNK, PRN (2 PUFFS 4 TIMES A DAY AS NEEDED)
     Dates: start: 202308
  2. ALBUTEROL SULFATE [Suspect]
     Active Substance: ALBUTEROL SULFATE
     Dosage: UNK, PRN (2 PUFFS 4 TIMES A DAY AS NEEDED)
     Dates: start: 202308

REACTIONS (5)
  - Dyspnoea [Unknown]
  - Dysarthria [Unknown]
  - Drug dose omission by device [Unknown]
  - Wrong technique in product usage process [Unknown]
  - Device delivery system issue [Unknown]
